FAERS Safety Report 23976001 (Version 1)
Quarter: 2024Q2

REPORT INFORMATION
  Report Type: Spontaneous
  Country: JP (occurrence: JP)
  Receive Date: 20240614
  Receipt Date: 20240614
  Transmission Date: 20240716
  Serious: Yes (Other)
  Sender: FDA-Public Use
  Company Number: JP-MLMSERVICE-20240527-PI077605-00039-1

PATIENT
  Age: 8 Decade
  Sex: Male

DRUGS (6)
  1. ACYCLOVIR [Suspect]
     Active Substance: ACYCLOVIR
     Indication: Ophthalmic herpes zoster
     Dosage: 10 MG/KG
     Route: 042
  2. ACYCLOVIR [Suspect]
     Active Substance: ACYCLOVIR
     Indication: Meningitis viral
  3. PREGABALIN [Concomitant]
     Active Substance: PREGABALIN
     Route: 065
  4. PREGABALIN [Concomitant]
     Active Substance: PREGABALIN
     Indication: Herpes zoster
  5. GEMIFLOXACIN [Concomitant]
     Active Substance: GEMIFLOXACIN
     Indication: Herpes zoster
  6. GEMIFLOXACIN [Concomitant]
     Active Substance: GEMIFLOXACIN

REACTIONS (1)
  - Renal impairment [Unknown]
